FAERS Safety Report 9893428 (Version 2)
Quarter: 2014Q1

REPORT INFORMATION
  Report Type: Spontaneous
  Country: US (occurrence: US)
  Receive Date: 20140213
  Receipt Date: 20140310
  Transmission Date: 20141002
  Serious: Yes (Death, Life-Threatening, Hospitalization, Other)
  Sender: FDA-Public Use
  Company Number: US-009507513-1402USA005815

PATIENT
  Sex: Female
  Weight: 79.32 kg

DRUGS (14)
  1. JANUVIA [Suspect]
     Indication: TYPE 2 DIABETES MELLITUS
     Dosage: 100 MG, DAILY
     Route: 048
     Dates: start: 20080731, end: 20110703
  2. HUMALOG [Concomitant]
     Indication: DIABETES MELLITUS
     Dosage: 6-10 UNITS AT MEALS
  3. METFORMIN [Concomitant]
     Indication: DIABETES MELLITUS
     Dosage: 100-500 MG
  4. LANTUS [Concomitant]
     Indication: DIABETES MELLITUS
     Dosage: 5-45 UNITS QD
     Route: 058
     Dates: start: 2010, end: 201307
  5. DIGOXIN [Concomitant]
     Indication: CARDIAC FAILURE CONGESTIVE
     Dosage: 125-250 MICROGRAM, DAILY
     Route: 048
     Dates: start: 2005, end: 201307
  6. ACTONEL [Concomitant]
     Indication: BONE DENSITY ABNORMAL
     Dosage: 150 MG, MONTHLY FIRST DAY
     Route: 048
     Dates: start: 2005, end: 2008
  7. DILTIAZEM HYDROCHLORIDE [Concomitant]
     Indication: HYPERTENSION
     Dosage: UNK
     Dates: start: 2005, end: 201307
  8. OMEPRAZOLE [Concomitant]
     Indication: GASTROOESOPHAGEAL REFLUX DISEASE
     Dosage: 20-120 MG, DAILY
     Route: 048
     Dates: start: 2000, end: 201306
  9. ASPIRIN [Concomitant]
     Indication: CARDIAC OPERATION
     Dosage: 81 MG, DAILY
     Route: 048
     Dates: start: 2005, end: 201307
  10. LOVASTATIN [Concomitant]
     Indication: CARDIAC OPERATION
     Dosage: 40 MG, DAILY
     Route: 048
     Dates: end: 201307
  11. VITAMINS (UNSPECIFIED) [Concomitant]
     Dosage: 1 DAILY
     Route: 048
     Dates: start: 2000, end: 201307
  12. CALCIUM (UNSPECIFIED) [Concomitant]
     Indication: OSTEOPOROSIS
     Dosage: UNK
     Dates: start: 2005, end: 201307
  13. CARTIA XT [Concomitant]
     Indication: HYPERTENSION
     Dosage: 120 MG, DAILY
  14. DILTIAZEM ER [Concomitant]
     Dosage: 120 MG, DAILY

REACTIONS (50)
  - Ductal adenocarcinoma of pancreas [Fatal]
  - Pancreaticoduodenectomy [Unknown]
  - Metastases to lymph nodes [Unknown]
  - Uterine leiomyoma [Unknown]
  - Haemorrhagic stroke [Fatal]
  - Deep vein thrombosis [Fatal]
  - Coronary artery disease [Fatal]
  - Diabetes mellitus [Fatal]
  - Dyslipidaemia [Fatal]
  - Cholecystectomy [Unknown]
  - Diabetes mellitus inadequate control [Unknown]
  - Pyrexia [Recovered/Resolved]
  - Hypokalaemia [Unknown]
  - Hyponatraemia [Unknown]
  - Dehydration [Unknown]
  - Pyrexia [Unknown]
  - Cerebral haematoma [Unknown]
  - Cerebral haematoma [Not Recovered/Not Resolved]
  - Pancreatitis chronic [Not Recovered/Not Resolved]
  - Pancreatitis acute [Recovered/Resolved]
  - Pancreatitis acute [Unknown]
  - Nausea [Unknown]
  - Fall [Unknown]
  - Gastroenteritis [Recovered/Resolved]
  - Hypertension [Recovered/Resolved]
  - Splenic calcification [Unknown]
  - Renal cyst [Unknown]
  - Arteriosclerosis [Unknown]
  - Hysterectomy [Unknown]
  - Diverticulum intestinal [Unknown]
  - Appendicectomy [Unknown]
  - Intervertebral disc disorder [Unknown]
  - Breast lump removal [Unknown]
  - Atrial fibrillation [Unknown]
  - Gastritis [Unknown]
  - Gastric polyps [Unknown]
  - Hiatus hernia [Unknown]
  - Breath sounds abnormal [Unknown]
  - Hernia repair [Unknown]
  - Pancreatic stent placement [Unknown]
  - Hepatic haematoma [Unknown]
  - Cholecystitis chronic [Not Recovered/Not Resolved]
  - Duodenal ulcer [Unknown]
  - Staphylococcal infection [Unknown]
  - Radiotherapy to pancreas [Unknown]
  - Pneumobilia [Unknown]
  - Stomatitis [Unknown]
  - Lung disorder [Unknown]
  - Diarrhoea [Recovered/Resolved]
  - Drug ineffective [Unknown]
